FAERS Safety Report 15314311 (Version 1)
Quarter: 2018Q3

REPORT INFORMATION
  Report Type: Spontaneous
  Country: US (occurrence: US)
  Receive Date: 20180824
  Receipt Date: 20180824
  Transmission Date: 20181010
  Serious: No
  Sender: FDA-Public Use
  Company Number: US-PFIZER INC-2018340958

PATIENT
  Sex: Female

DRUGS (2)
  1. INSPRA [Suspect]
     Active Substance: EPLERENONE
     Indication: BLOOD PRESSURE INCREASED
     Dosage: 50 MG, 1X/DAY
     Route: 048
  2. INSPRA [Suspect]
     Active Substance: EPLERENONE
     Dosage: 50 MG, ALTERNATE DAY
     Route: 048

REACTIONS (3)
  - Intentional product misuse [Unknown]
  - Drug ineffective [Unknown]
  - Renal disorder [Unknown]
